FAERS Safety Report 9252057 (Version 4)
Quarter: 2016Q3

REPORT INFORMATION
  Report Type: Report from Study
  Country: GB (occurrence: ZA)
  Receive Date: 20130424
  Receipt Date: 20160817
  Transmission Date: 20161109
  Serious: Yes (Hospitalization)
  Sender: FDA-Public Use
  Company Number: GB-JNJFOC-20130410484

PATIENT
  Age: 36 Year
  Sex: Male
  Weight: 98 kg

DRUGS (2)
  1. USTEKINUMAB [Suspect]
     Active Substance: USTEKINUMAB
     Indication: PSORIASIS
     Route: 058
     Dates: start: 20120828
  2. CICLOSPORIN [Concomitant]
     Active Substance: CYCLOSPORINE
     Dates: start: 20110118

REACTIONS (3)
  - Anal abscess [Recovered/Resolved]
  - Product use issue [Unknown]
  - Off label use [Unknown]

NARRATIVE: CASE EVENT DATE: 20120828
